FAERS Safety Report 12373337 (Version 2)
Quarter: 2016Q2

REPORT INFORMATION
  Report Type: Report from Study
  Country: US (occurrence: US)
  Receive Date: 20160516
  Receipt Date: 20160526
  Transmission Date: 20160815
  Serious: Yes (Other)
  Sender: FDA-Public Use
  Company Number: US-ABBVIE-16P-163-1625888-00

PATIENT
  Sex: Female
  Weight: 54.03 kg

DRUGS (4)
  1. LUPRON DEPOT [Suspect]
     Active Substance: LEUPROLIDE ACETATE
     Indication: ENDOMETRIOSIS
     Dosage: REC^D 6 MONTH COURSES FROM 2010-2013
     Route: 050
     Dates: start: 2010, end: 2013
  2. EFFEXOR [Concomitant]
     Active Substance: VENLAFAXINE HYDROCHLORIDE
     Indication: PRODUCT USED FOR UNKNOWN INDICATION
     Route: 065
  3. LUPRON DEPOT [Suspect]
     Active Substance: LEUPROLIDE ACETATE
     Indication: ENDOMETRIOSIS
     Dosage: TAKEN FOR 6 MONTHS
     Route: 050
     Dates: start: 2009
  4. KEPPRA [Concomitant]
     Active Substance: LEVETIRACETAM
     Indication: PRODUCT USED FOR UNKNOWN INDICATION
     Route: 065

REACTIONS (15)
  - Uterine perforation [Unknown]
  - Anxiety [Not Recovered/Not Resolved]
  - Endometriosis [Unknown]
  - Seizure [Recovering/Resolving]
  - Bone deformity [Recovered/Resolved]
  - Deafness traumatic [Recovering/Resolving]
  - Post-traumatic epilepsy [Not Recovered/Not Resolved]
  - Depression [Not Recovered/Not Resolved]
  - Hypoprogesteronism [Unknown]
  - Foot operation [Unknown]
  - Generalised tonic-clonic seizure [Not Recovered/Not Resolved]
  - Road traffic accident [Unknown]
  - Petit mal epilepsy [Not Recovered/Not Resolved]
  - Menorrhagia [Unknown]
  - Pelvic pain [Unknown]

NARRATIVE: CASE EVENT DATE: 2010
